FAERS Safety Report 13235043 (Version 2)
Quarter: 2017Q1

REPORT INFORMATION
  Report Type: Spontaneous
  Country: GB (occurrence: GB)
  Receive Date: 20170215
  Receipt Date: 20170222
  Transmission Date: 20170428
  Serious: Yes (Hospitalization, Other)
  Sender: FDA-Public Use
  Company Number: GB-PFIZER INC-1724823

PATIENT
  Age: 68 Year
  Sex: Female
  Weight: 62.4 kg

DRUGS (27)
  1. VINCRISTINE SULFATE. [Suspect]
     Active Substance: VINCRISTINE SULFATE
     Indication: DIFFUSE LARGE B-CELL LYMPHOMA
     Dosage: 2 MG, EVERY 3 WEEKS
     Route: 042
     Dates: start: 20130319
  2. ALLOPURINOL. [Concomitant]
     Active Substance: ALLOPURINOL
     Indication: GOUT
     Dosage: UNK (DOSAGE FORM: UNSPECIFIED)
     Route: 065
     Dates: start: 20130311
  3. DALTEPARIN SODIUM [Concomitant]
     Active Substance: DALTEPARIN SODIUM
     Indication: ANTICOAGULANT THERAPY
     Dosage: UNK (DOSAGE FORM: UNSPECIFIED)
     Route: 065
     Dates: start: 20130309
  4. PREDNISONE. [Concomitant]
     Active Substance: PREDNISONE
     Dosage: DOSAGE FORM: UNSPECIFIED
     Route: 048
     Dates: start: 20130323
  5. LIPOSOMAL DOXORUBICIN HYDROCHLORIDE [Suspect]
     Active Substance: DOXORUBICIN HYDROCHLORIDE
     Dosage: 65 MG, EVERY 3 WEEKS
     Route: 042
     Dates: start: 20130503
  6. RITUXIMAB [Suspect]
     Active Substance: RITUXIMAB
     Indication: DIFFUSE LARGE B-CELL LYMPHOMA
     Dosage: 250 ML, EVERY 3 WEEKS
     Route: 042
     Dates: start: 20130319
  7. CHLORPHENAMINE MALEATE [Concomitant]
     Active Substance: CHLORPHENIRAMINE MALEATE
     Indication: PRURITUS
     Dosage: UNK (DOSAGE FORM: UNSPECIFIED)
     Route: 065
     Dates: start: 20130309
  8. CYCLIZINE [Concomitant]
     Active Substance: CYCLIZINE
     Indication: NAUSEA
     Dosage: UNK 9DOSAGE FORM: UNSPECIFIED)
     Route: 065
     Dates: start: 20130310
  9. GENTAMYCIN SULFATE [Concomitant]
     Active Substance: GENTAMICIN SULFATE
     Indication: NEUTROPENIA
     Dosage: UNK (DOSAGE FORM: UNSPECIFIED)
     Route: 065
     Dates: start: 20130326
  10. ACICLOVIR [Concomitant]
     Active Substance: ACYCLOVIR
     Indication: HERPES SIMPLEX
     Dosage: UNK (DOSAGE FORM: UNSPECIFIED)
     Route: 065
     Dates: start: 20130412
  11. MEBEVERINE HYDROCHLORIDE [Concomitant]
     Active Substance: MEBEVERINE HYDROCHLORIDE
     Indication: ABDOMINAL PAIN
     Dosage: UNK (DOSAGE FORM: UNSPECIFIED)
     Route: 065
  12. PREDNISONE. [Concomitant]
     Active Substance: PREDNISONE
     Dosage: DOSAGE FORM: UNSPECIFIED
     Route: 048
     Dates: start: 20130506
  13. LIPOSOMAL DOXORUBICIN HYDROCHLORIDE [Suspect]
     Active Substance: DOXORUBICIN HYDROCHLORIDE
     Indication: DIFFUSE LARGE B-CELL LYMPHOMA
     Dosage: 90 MG, EVERY 3 WEEKS
     Route: 042
     Dates: start: 20130319
  14. CYCLOPHOSPHAMIDE. [Suspect]
     Active Substance: CYCLOPHOSPHAMIDE
     Indication: DIFFUSE LARGE B-CELL LYMPHOMA
     Dosage: 1300 MG, EVERY 3 WEEKS
     Route: 042
     Dates: start: 20130319
  15. HYDROXYZINE HYDROCHLORIDE. [Concomitant]
     Active Substance: HYDROXYZINE HYDROCHLORIDE
     Indication: PRURITUS
     Dosage: UNK (DOSAGE FORM: UNSPECIFIED)
     Route: 065
     Dates: start: 20130402
  16. TRAMADOL. [Concomitant]
     Active Substance: TRAMADOL
     Indication: PAIN
     Dosage: UNK (DOSAGE FORM: UNSPECIFIED)
     Route: 065
     Dates: start: 20130314
  17. ONDANSETRON [Concomitant]
     Active Substance: ONDANSETRON
     Indication: NAUSEA
     Dosage: UNK
     Route: 065
     Dates: start: 20130319, end: 20130319
  18. ONDANSETRON [Concomitant]
     Active Substance: ONDANSETRON
     Dosage: UNK
     Route: 065
     Dates: start: 20130412, end: 20130414
  19. PARACETAMOL [Concomitant]
     Active Substance: ACETAMINOPHEN
     Indication: PYREXIA
     Dosage: UNK (DOSAGE FORM: UNSPECIFIED)
     Route: 065
     Dates: start: 20130310
  20. PREDNISOLONE. [Concomitant]
     Active Substance: PREDNISOLONE
     Indication: PRODUCT USED FOR UNKNOWN INDICATION
     Dosage: UNK (DOSAGE FORM: UNSPECIFIED)
     Route: 065
     Dates: start: 20130313
  21. PREDNISONE. [Concomitant]
     Active Substance: PREDNISONE
     Indication: DIFFUSE LARGE B-CELL LYMPHOMA
     Dosage: 100 MG, UNK (100 MG, DOSAGE FORM: UNSPECIFIED)
     Route: 048
     Dates: start: 20130319
  22. VINCRISTINE SULFATE. [Suspect]
     Active Substance: VINCRISTINE SULFATE
     Dosage: 2 MG, EVERY 3 WEEKS
     Route: 042
     Dates: start: 20130503
  23. DOMPERIDONE [Concomitant]
     Active Substance: DOMPERIDONE
     Indication: NAUSEA
     Dosage: UNK (UNK (DOSAGE FORM: UNSPECIFIED)
     Route: 065
     Dates: start: 20130319
  24. TAZOCIN [Concomitant]
     Active Substance: PIPERACILLIN SODIUM\TAZOBACTAM SODIUM
     Indication: NEUTROPENIA
     Dosage: UNK (DOSAGE FORM: UNSPECIFIED)
     Route: 065
     Dates: start: 20130326
  25. DEXAMETHASONE. [Concomitant]
     Active Substance: DEXAMETHASONE
     Indication: PRODUCT USED FOR UNKNOWN INDICATION
     Dosage: UNK (DOSAGE FORM: UNSPECIFIED)
     Route: 065
     Dates: start: 20130412, end: 20130412
  26. HYDROCORTISONE. [Concomitant]
     Active Substance: HYDROCORTISONE
     Indication: PYREXIA
     Dosage: UNK (DOSAGE FORM: UNSPECIFIED)
     Route: 065
     Dates: start: 20130319, end: 20130319
  27. OMEPRAZOLE. [Concomitant]
     Active Substance: OMEPRAZOLE
     Indication: GASTROOESOPHAGEAL REFLUX DISEASE
     Dosage: UNK (DOSAGE FORM: UNSPECIFIED)
     Route: 065
     Dates: start: 20130310

REACTIONS (2)
  - Neutropenic sepsis [Recovered/Resolved]
  - Neutropenic sepsis [Recovered/Resolved]

NARRATIVE: CASE EVENT DATE: 20130326
